FAERS Safety Report 12056299 (Version 1)
Quarter: 2016Q1

REPORT INFORMATION
  Report Type: Spontaneous
  Country: US (occurrence: US)
  Receive Date: 20160209
  Receipt Date: 20160209
  Transmission Date: 20160526
  Serious: No
  Sender: FDA-Public Use
  Company Number: US-ABBVIE-15P-163-1479205-00

PATIENT
  Age: 60 Year

DRUGS (1)
  1. HUMIRA [Suspect]
     Active Substance: ADALIMUMAB
     Indication: PRODUCT USED FOR UNKNOWN INDICATION
     Route: 065

REACTIONS (5)
  - Immunodeficiency [Unknown]
  - Psoriasis [Unknown]
  - Osteoarthritis [Unknown]
  - Ankylosing spondylitis [Unknown]
  - Psoriatic arthropathy [Unknown]
